FAERS Safety Report 7435824-X (Version None)
Quarter: 2011Q2

REPORT INFORMATION
  Report Type: 
  Country: None (occurrence: None)
  Receive Date: 20110425
  Receipt Date: 20110414
  Transmission Date: 20111010
  Serious: Yes (Other)
  Sender: FDA-Public Use
  Company Number: FR-ELI_LILLY_AND_COMPANY-FR201104004518

PATIENT
  Age: 55 Year
  Sex: Male

DRUGS (1)
  1. ZYPREXA [Suspect]
     Dosage: 10 MG, QD
     Route: 048

REACTIONS (3)
  - ANGLE CLOSURE GLAUCOMA [None]
  - OFF LABEL USE [None]
  - DIZZINESS [None]
